FAERS Safety Report 9289258 (Version 4)
Quarter: 2013Q4

REPORT INFORMATION
  Report Type: Spontaneous
  Country: US (occurrence: US)
  Receive Date: 20130514
  Receipt Date: 20131030
  Transmission Date: 20140711
  Serious: Yes (Hospitalization, Other)
  Sender: FDA-Public Use
  Company Number: US-009507513-1305USA005511

PATIENT
  Sex: Female
  Weight: 56.69 kg

DRUGS (7)
  1. FOSAMAX [Suspect]
     Indication: OSTEOPOROSIS POSTMENOPAUSAL
     Dosage: 70 MG, UNK
     Route: 048
     Dates: start: 20051118, end: 200612
  2. FOSAMAX PLUS D [Suspect]
     Indication: OSTEOPOROSIS POSTMENOPAUSAL
     Dosage: UNK
     Route: 048
     Dates: start: 200701, end: 20070828
  3. CORTICOSTEROIDS (UNSPECIFIED) [Concomitant]
     Dosage: UNK
     Dates: start: 1991, end: 2008
  4. CALCIUM (UNSPECIFIED) (+) VITAMIN D (UNSPECIFIED) [Concomitant]
     Indication: OSTEOPOROSIS POSTMENOPAUSAL
     Dosage: 600 MG, BID
     Dates: start: 2006
  5. GABAPENTIN [Concomitant]
     Indication: MULTIPLE SCLEROSIS
     Dosage: 800 MG, TID
     Dates: start: 2006, end: 2010
  6. LORATADINE [Concomitant]
     Indication: HYPERSENSITIVITY
     Dosage: UNK
     Dates: start: 2006, end: 2010
  7. POTASSIUM CHLORIDE [Concomitant]
     Dosage: 10 MICROGRAM, DAILY
     Dates: start: 2005

REACTIONS (31)
  - Femoral neck fracture [Unknown]
  - Open reduction of fracture [Unknown]
  - Urinary tract infection [Unknown]
  - Sepsis [Unknown]
  - Bladder catheterisation [Unknown]
  - Hand fracture [Unknown]
  - Upper limb fracture [Unknown]
  - Hip arthroplasty [Unknown]
  - Road traffic accident [Unknown]
  - Anxiety [Unknown]
  - Depression [Unknown]
  - Anxiety [Unknown]
  - Bladder disorder [Unknown]
  - Hypersomnia [Unknown]
  - Polyuria [Unknown]
  - Herpes zoster [Unknown]
  - Hypotension [Unknown]
  - Breath sounds abnormal [Unknown]
  - Limb operation [Unknown]
  - Foot operation [Unknown]
  - Escherichia urinary tract infection [Unknown]
  - Multiple fractures [Unknown]
  - Hypertension [Unknown]
  - Nephrolithiasis [Unknown]
  - Faecaloma [Unknown]
  - Urinary tract infection [Unknown]
  - Palpitations [Unknown]
  - Dyspnoea [Unknown]
  - Pulmonary function test decreased [Unknown]
  - Fall [Unknown]
  - Local swelling [Unknown]
